FAERS Safety Report 13327148 (Version 1)
Quarter: 2017Q1

REPORT INFORMATION
  Report Type: Report from Study
  Country: US (occurrence: US)
  Receive Date: 20170313
  Receipt Date: 20170313
  Transmission Date: 20170428
  Serious: Yes (Other)
  Sender: FDA-Public Use
  Company Number: US-ROCHE-1902371

PATIENT

DRUGS (8)
  1. PEG-INTERFERON ALFA 2A [Suspect]
     Active Substance: PEGINTERFERON ALFA-2A
     Indication: HEPATITIS C
     Route: 058
  2. RIBAVIRIN. [Suspect]
     Active Substance: RIBAVIRIN
     Indication: HEPATITIS C
     Dosage: ({75 KG, 1000 MG/DAY; }=75 KG, 1200 MG/DAY)
     Route: 048
  3. ATAZANAVIR [Concomitant]
     Active Substance: ATAZANAVIR
  4. PEG-INTERFERON ALFA 2A [Suspect]
     Active Substance: PEGINTERFERON ALFA-2A
     Indication: HIV INFECTION
  5. DACLATASVIR. [Suspect]
     Active Substance: DACLATASVIR
     Indication: HEPATITIS C
     Dosage: (30, 60 OR 90 MG DAILY
     Route: 048
  6. RITONAVIR. [Concomitant]
     Active Substance: RITONAVIR
  7. DACLATASVIR. [Suspect]
     Active Substance: DACLATASVIR
     Indication: HIV INFECTION
  8. RIBAVIRIN. [Suspect]
     Active Substance: RIBAVIRIN
     Indication: HIV INFECTION

REACTIONS (7)
  - White blood cell count decreased [Unknown]
  - Hypokalaemia [Unknown]
  - Sudden hearing loss [Unknown]
  - Blood phosphorus decreased [Unknown]
  - Neutrophil count decreased [Unknown]
  - Blood bilirubin increased [Unknown]
  - Hyponatraemia [Unknown]
